FAERS Safety Report 8041019-1 (Version None)
Quarter: 2012Q1

REPORT INFORMATION
  Report Type: 
  Country: None (occurrence: None)
  Receive Date: 20120112
  Receipt Date: 20120103
  Transmission Date: 20120608
  Serious: Yes (Hospitalization)
  Sender: FDA-Public Use
  Company Number: US-SHIRE-ALL1-2012-00026

PATIENT
  Sex: Male
  Weight: 86.168 kg

DRUGS (7)
  1. KLONOPIN [Concomitant]
     Indication: ANXIETY
     Dosage: 2 MG, 1X/DAY:QD
     Route: 048
  2. NAPROXEN [Concomitant]
     Indication: OSTEOARTHRITIS
     Dosage: UNK, AS REQ'D
     Route: 048
  3. CELEXA [Concomitant]
     Indication: DEPRESSION
     Dosage: 20 MG, 1X/DAY:QD
     Route: 048
  4. ADDERALL 5 [Suspect]
     Dosage: 30 MG, 1X/DAY:QD
     Route: 048
     Dates: start: 20110101
  5. ADDERALL XR 10 [Suspect]
     Indication: ATTENTION DEFICIT/HYPERACTIVITY DISORDER
     Dosage: 15 MG, 1X/DAY:QD
     Route: 048
     Dates: start: 20080101, end: 20110101
  6. ADDERALL 5 [Suspect]
     Indication: ATTENTION DEFICIT/HYPERACTIVITY DISORDER
     Dosage: 15 MG, 1X/DAY:QD
     Route: 048
     Dates: start: 20080101, end: 20110101
  7. ADDERALL XR 10 [Suspect]
     Dosage: 30 MG, 1X/DAY:QD
     Route: 048
     Dates: start: 20110101

REACTIONS (4)
  - RESPIRATORY RATE INCREASED [None]
  - URINE AMPHETAMINE POSITIVE [None]
  - HEART RATE INCREASED [None]
  - ANXIETY [None]
